FAERS Safety Report 12380333 (Version 1)
Quarter: 2016Q2

REPORT INFORMATION
  Report Type: Spontaneous
  Country: US (occurrence: None)
  Receive Date: 20160516
  Receipt Date: 20160516
  Transmission Date: 20160815
  Serious: Yes (Hospitalization)
  Sender: FDA-Public Use
  Company Number: None

PATIENT
  Age: 78 Year
  Sex: Male
  Weight: 70.9 kg

DRUGS (1)
  1. CEFEPIME [Suspect]
     Active Substance: CEFEPIME HYDROCHLORIDE
     Route: 058
     Dates: start: 20160403

REACTIONS (4)
  - Urinary retention [None]
  - Hyperkalaemia [None]
  - Mental status changes [None]
  - Seizure [None]

NARRATIVE: CASE EVENT DATE: 20160403
